FAERS Safety Report 14216771 (Version 1)
Quarter: 2017Q4

REPORT INFORMATION
  Report Type: Spontaneous
  Country: US (occurrence: US)
  Receive Date: 20171122
  Receipt Date: 20171122
  Transmission Date: 20180321
  Serious: No
  Sender: FDA-Public Use
  Company Number: US-009507513-1711USA001362

PATIENT
  Age: 29 Year
  Sex: Female
  Weight: 96.15 kg

DRUGS (6)
  1. MAXALT [Suspect]
     Active Substance: RIZATRIPTAN BENZOATE
     Indication: MIGRAINE
     Dosage: 10 MG TABLET, AS NEEDED, NOT TO EXCEED 3 TABLETS IN 24 HOURS
     Route: 048
     Dates: start: 201707
  2. AMITRIPTYLINE HYDROCHLORIDE. [Concomitant]
     Active Substance: AMITRIPTYLINE HYDROCHLORIDE
  3. TYLENOL [Concomitant]
     Active Substance: ACETAMINOPHEN
     Dosage: AS NEEDED
  4. GLYBURIDE. [Concomitant]
     Active Substance: GLYBURIDE
  5. IRON (UNSPECIFIED) [Concomitant]
     Active Substance: IRON
  6. ZOFRAN [Concomitant]
     Active Substance: ONDANSETRON HYDROCHLORIDE

REACTIONS (2)
  - No adverse event [Unknown]
  - Exposure during pregnancy [Unknown]

NARRATIVE: CASE EVENT DATE: 201707
